FAERS Safety Report 12838945 (Version 9)
Quarter: 2017Q3

REPORT INFORMATION
  Report Type: Spontaneous
  Country: PR (occurrence: PR)
  Receive Date: 20161012
  Receipt Date: 20170718
  Transmission Date: 20171127
  Serious: Yes (Other)
  Sender: FDA-Public Use
  Company Number: PR-PFIZER INC-2016469907

PATIENT
  Age: 82 Year
  Sex: Female
  Weight: 68.27 kg

DRUGS (8)
  1. IBRANCE [Suspect]
     Active Substance: PALBOCICLIB
     Dosage: 75 MG, DAILY
     Route: 048
     Dates: start: 20160921
  2. IBRANCE [Suspect]
     Active Substance: PALBOCICLIB
     Indication: BREAST CANCER FEMALE
     Dosage: 75 MG, DAILY
     Route: 048
     Dates: start: 20160921
  3. CANNABIS [Suspect]
     Active Substance: CANNABIS SATIVA SUBSP. INDICA TOP
     Dosage: UNK
  4. IBRANCE [Suspect]
     Active Substance: PALBOCICLIB
     Dosage: 75 MG, DAILY
     Route: 048
  5. IBRANCE [Suspect]
     Active Substance: PALBOCICLIB
     Dosage: 75 MG, DAILY
     Route: 048
  6. IBRANCE [Suspect]
     Active Substance: PALBOCICLIB
     Dosage: 75 MG, DAILY
     Route: 048
  7. IBRANCE [Suspect]
     Active Substance: PALBOCICLIB
     Dosage: 75 MG, DAILY
     Route: 048
  8. IBRANCE [Suspect]
     Active Substance: PALBOCICLIB
     Dosage: 75 MG, DAILY
     Route: 048
     Dates: start: 20160921

REACTIONS (17)
  - Peripheral swelling [Unknown]
  - Rash [Unknown]
  - Constipation [Unknown]
  - Hypertension [Recovering/Resolving]
  - Back pain [Not Recovered/Not Resolved]
  - Dizziness [Unknown]
  - Pain [Unknown]
  - Neck pain [Unknown]
  - Lacrimation increased [Unknown]
  - Myalgia [Unknown]
  - Pruritus generalised [Unknown]
  - Cough [Not Recovered/Not Resolved]
  - Vomiting [Unknown]
  - Arrhythmia [Unknown]
  - Decreased appetite [Unknown]
  - Fatigue [Unknown]
  - Abdominal pain upper [Unknown]

NARRATIVE: CASE EVENT DATE: 2016
